FAERS Safety Report 7168006-X (Version None)
Quarter: 2010Q4

REPORT INFORMATION
  Report Type: 
  Country: None (occurrence: None)
  Receive Date: 20101216
  Receipt Date: 20101204
  Transmission Date: 20110411
  Serious: No
  Sender: FDA-Public Use
  Company Number: US-PFIZER INC-2010164169

PATIENT
  Age: 85 Year
  Sex: Male
  Weight: 88 kg

DRUGS (7)
  1. TIKOSYN [Suspect]
     Indication: ATRIAL FIBRILLATION
     Dosage: 500 UG, 2X/DAY
     Route: 048
     Dates: start: 20090101
  2. WARFARIN SODIUM [Concomitant]
     Indication: CARDIAC DISORDER
     Dosage: 2.5 MG, UNK
     Route: 048
  3. DIOVANE [Concomitant]
     Indication: CARDIAC DISORDER
     Dosage: 2.5 MG, UNK
     Route: 048
  4. DILTIAZEM [Concomitant]
     Indication: CARDIAC DISORDER
     Dosage: 180/24 MG, UNK
     Route: 048
  5. MONTELUKAST SODIUM [Concomitant]
     Indication: HYPERSENSITIVITY
     Dosage: 10 MG, UNK
     Route: 048
  6. FUROSEMIDE [Concomitant]
     Indication: DIURETIC THERAPY
     Dosage: 20 MG, UNK
     Route: 048
  7. POTASSIUM [Concomitant]
     Dosage: 20 MG, UNK
     Route: 048

REACTIONS (6)
  - BLOOD PRESSURE DECREASED [None]
  - FATIGUE [None]
  - FEELING ABNORMAL [None]
  - INSOMNIA [None]
  - NASAL CONGESTION [None]
  - SINUS DISORDER [None]
